FAERS Safety Report 9031204 (Version 3)
Quarter: 2013Q2

REPORT INFORMATION
  Report Type: Spontaneous
  Country: US (occurrence: US)
  Receive Date: 20130123
  Receipt Date: 20130419
  Transmission Date: 20140414
  Serious: Yes (Hospitalization, Other)
  Sender: FDA-Public Use
  Company Number: US-B.I. PHARMACEUTICALS,INC./RIDGEFIELD-2013-BI-01139BP

PATIENT
  Age: 69 Year
  Sex: Male
  Weight: 104.33 kg

DRUGS (7)
  1. PRADAXA [Suspect]
     Indication: AMAUROSIS FUGAX
     Dosage: 300 MG
     Route: 048
     Dates: end: 20110418
  2. SYNTHROID [Concomitant]
     Indication: HYPOTHYROIDISM
     Dosage: 50 MCG
     Route: 048
  3. ASA [Concomitant]
     Dosage: 81 MG
     Route: 048
  4. SIMVASTATIN [Concomitant]
     Dosage: 80 MG
     Route: 048
  5. NIASPAN [Concomitant]
     Dosage: 500 MG
     Route: 048
  6. METFORMIN ER [Concomitant]
     Dosage: 1500 MG
     Route: 048
  7. DIOVAN [Concomitant]
     Dosage: 80 MG
     Route: 048

REACTIONS (2)
  - Subdural haematoma [Recovered/Resolved]
  - Cerebral haemorrhage [Unknown]
